FAERS Safety Report 7088046-9 (Version None)
Quarter: 2010Q4

REPORT INFORMATION
  Report Type: 
  Country: None (occurrence: None)
  Receive Date: 20101026
  Receipt Date: 20101004
  Transmission Date: 20110411
  Serious: No
  Sender: FDA-Public Use
  Company Number: 2010-00872

PATIENT
  Age: 69 Year
  Sex: Male
  Weight: 86.1834 kg

DRUGS (14)
  1. ZICAM COLD REMEDY GEL SWABS [Suspect]
     Indication: NASOPHARYNGITIS
     Dosage: Q 4 HRS, 4 DAYS
     Dates: start: 20101001, end: 20101004
  2. SIMVASTATIN [Concomitant]
  3. METOPROLOL [Concomitant]
  4. ASCORBIC ACID [Concomitant]
  5. VITAMIN D [Concomitant]
  6. FISH OIL [Concomitant]
  7. ASPIRIN [Concomitant]
  8. GLUCOSAMINE [Concomitant]
  9. ZINC [Concomitant]
  10. CALCIUM [Concomitant]
  11. GARLIC [Concomitant]
  12. MAGNESIUM [Concomitant]
  13. SAW PALMETTO [Concomitant]
  14. LECITHIN [Concomitant]

REACTIONS (1)
  - ANOSMIA [None]
